FAERS Safety Report 17146546 (Version 5)
Quarter: 2020Q1

REPORT INFORMATION
  Report Type: Report from Study
  Country: None (occurrence: ES)
  Receive Date: 20191212
  Receipt Date: 20200120
  Transmission Date: 20200409
  Serious: Yes (Hospitalization, Other)
  Sender: FDA-Public Use
  Company Number: ES-ABBVIE-19K-144-3176516-00

PATIENT
  Sex: Male
  Weight: 43 kg

DRUGS (1)
  1. DUODOPA [Suspect]
     Active Substance: CARBIDOPA\LEVODOPA
     Indication: PARKINSON^S DISEASE
     Route: 050
     Dates: start: 20191128

REACTIONS (7)
  - Sepsis [Recovered/Resolved]
  - Syncope [Recovering/Resolving]
  - Peritonitis [Recovered/Resolved]
  - Stoma site infection [Recovering/Resolving]
  - Hypotension [Not Recovered/Not Resolved]
  - Atrial fibrillation [Recovered/Resolved]
  - Stoma site discharge [Recovering/Resolving]

NARRATIVE: CASE EVENT DATE: 2019
